FAERS Safety Report 18935922 (Version 1)
Quarter: 2021Q1

REPORT INFORMATION
  Report Type: Spontaneous
  Country: US (occurrence: US)
  Receive Date: 20210225
  Receipt Date: 20210225
  Transmission Date: 20210420
  Serious: No
  Sender: FDA-Public Use
  Company Number: US-009507513-2102USA000153

PATIENT
  Sex: Male

DRUGS (1)
  1. INTRON A [Suspect]
     Active Substance: INTERFERON ALFA-2B
     Indication: OCULAR NEOPLASM
     Dosage: UNK, AS EYE DROPS
     Route: 047

REACTIONS (1)
  - Product prescribing issue [Unknown]
